FAERS Safety Report 4876593-7 (Version None)
Quarter: 2006Q1

REPORT INFORMATION
  Report Type: 
  Country: None (occurrence: None)
  Receive Date: 20060110
  Receipt Date: 20060105
  Transmission Date: 20060701
  Serious: Yes (Other)
  Sender: FDA-Public Use
  Company Number: 200514312EU

PATIENT
  Age: 67 Year
  Sex: Male

DRUGS (7)
  1. NICORETTE [Suspect]
     Indication: DRUG USE FOR UNKNOWN INDICATION
     Dosage: 2MG SEE DOSAGE TEXT
     Route: 002
     Dates: start: 20020101
  2. FORADIL [Concomitant]
     Route: 055
  3. AXOTIDE [Concomitant]
     Route: 055
  4. TOREM [Concomitant]
     Route: 048
  5. CALCIMAGON-D3 [Concomitant]
     Route: 048
  6. FOSAMAX [Concomitant]
     Route: 048
  7. XATRAL [Concomitant]
     Route: 048

REACTIONS (2)
  - DRUG DEPENDENCE [None]
  - MEDICATION ERROR [None]
